FAERS Safety Report 8948125 (Version 1)
Quarter: 2012Q4

REPORT INFORMATION
  Report Type: Spontaneous
  Country: US (occurrence: None)
  Receive Date: 20121203
  Receipt Date: 20121203
  Transmission Date: 20130627
  Serious: No
  Sender: FDA-Public Use
  Company Number: None

PATIENT
  Age: 55 Year
  Sex: Female
  Weight: 77.11 kg

DRUGS (2)
  1. AMPHETAMINE SULFATE\DEXTROAMPHETAMINE [Suspect]
     Indication: ADD
     Route: 048
     Dates: start: 20121031, end: 20121023
  2. AMPHETAMINE SALTS [Suspect]
     Indication: ADD
     Dates: start: 20121124, end: 20121129

REACTIONS (7)
  - Nausea [None]
  - Headache [None]
  - Nervousness [None]
  - Irritability [None]
  - Drug ineffective [None]
  - Product substitution issue [None]
  - Product quality issue [None]
